FAERS Safety Report 8590467-X (Version None)
Quarter: 2012Q3

REPORT INFORMATION
  Report Type: 
  Country: None (occurrence: None)
  Receive Date: 20120813
  Receipt Date: 20120808
  Transmission Date: 20120928
  Serious: Yes (Other)
  Sender: FDA-Public Use
  Company Number: CO-PFIZER INC-2012195802

PATIENT
  Age: 35 Year
  Sex: Female

DRUGS (5)
  1. DOSTINEX [Suspect]
     Dosage: 4 TABLETS  OF 0.5 MG INTER-DAY
     Route: 048
  2. ESTROGENS [Concomitant]
     Indication: BLOOD PROLACTIN INCREASED
     Dosage: UNK
     Dates: start: 20080101
  3. DOSTINEX [Suspect]
     Indication: BLOOD PROLACTIN INCREASED
     Dosage: 2 TABLETS  OF 0.5 MG INTER-DAY
     Route: 048
     Dates: start: 20080101
  4. CALCIUM [Concomitant]
     Indication: BLOOD PROLACTIN INCREASED
     Dosage: UNK
     Dates: start: 20080101
  5. CABERGOLINE [Suspect]
     Indication: BLOOD PROLACTIN INCREASED
     Dosage: 0.5 MG, UNK
     Dates: start: 20080101

REACTIONS (6)
  - DRUG INEFFECTIVE [None]
  - HEADACHE [None]
  - BRAIN OEDEMA [None]
  - VOMITING [None]
  - DIZZINESS [None]
  - NAUSEA [None]
